FAERS Safety Report 15113651 (Version 1)
Quarter: 2018Q3

REPORT INFORMATION
  Report Type: Spontaneous
  Country: IT (occurrence: IT)
  Receive Date: 20180706
  Receipt Date: 20180706
  Transmission Date: 20181010
  Serious: Yes (Other)
  Sender: FDA-Public Use
  Company Number: IT-TEVA-2018-IT-921645

PATIENT
  Age: 52 Year
  Sex: Female
  Weight: 54 kg

DRUGS (2)
  1. CYCLOPHOSPHAMIDE. [Suspect]
     Active Substance: CYCLOPHOSPHAMIDE
     Indication: BREAST NEOPLASM
     Route: 041
     Dates: start: 20180430
  2. EPIRUBICINA TEVA 2 MG/ML SOLUZIONE INIETTABILE O PER INFUSIONE [Suspect]
     Active Substance: EPIRUBICIN
     Indication: BREAST NEOPLASM
     Dates: start: 20180430

REACTIONS (2)
  - Gastrointestinal toxicity [Unknown]
  - Bone marrow toxicity [Unknown]

NARRATIVE: CASE EVENT DATE: 20180430
